FAERS Safety Report 23925080 (Version 1)
Quarter: 2024Q2

REPORT INFORMATION
  Report Type: Spontaneous
  Country: US (occurrence: None)
  Receive Date: 20240531
  Receipt Date: 20240531
  Transmission Date: 20240716
  Serious: No
  Sender: FDA-Public Use
  Company Number: None

PATIENT

DRUGS (2)
  1. RACEPINEPHRINE [Suspect]
     Active Substance: RACEPINEPHRINE
     Dosage: ORAL INHALATION   UNIT DOSE VIAL
     Route: 048
  2. BUDESONIDE [Suspect]
     Active Substance: BUDESONIDE
     Dosage: SUSPENSION INHALATION
     Route: 055

REACTIONS (2)
  - Product packaging confusion [None]
  - Product label confusion [None]
